FAERS Safety Report 22399989 (Version 4)
Quarter: 2025Q4

REPORT INFORMATION
  Report Type: Spontaneous
  Country: EU (occurrence: EU)
  Receive Date: 20230602
  Receipt Date: 20251022
  Transmission Date: 20260117
  Serious: Yes (Other)
  Sender: ORGANON
  Company Number: EU-ORGANON-O2305ESP002637

PATIENT
  Sex: Female

DRUGS (4)
  1. EZETIMIBE [Suspect]
     Active Substance: EZETIMIBE
     Dosage: UNK
  2. BISOPROLOL FUMARATE [Suspect]
     Active Substance: BISOPROLOL FUMARATE
     Dosage: UNK
  3. ASPIRIN\ATORVASTATIN CALCIUM\RAMIPRIL [Suspect]
     Active Substance: ASPIRIN\ATORVASTATIN CALCIUM\RAMIPRIL
     Dosage: UNK
  4. PANTOPRAZOLE [Suspect]
     Active Substance: PANTOPRAZOLE
     Dosage: UNK

REACTIONS (4)
  - Haematochezia [Unknown]
  - Hiatus hernia [Unknown]
  - Diarrhoea [Recovered/Resolved]
  - Flatulence [Not Recovered/Not Resolved]

NARRATIVE: CASE EVENT DATE: 20220101
